FAERS Safety Report 19504832 (Version 1)
Quarter: 2021Q3

REPORT INFORMATION
  Report Type: Other
  Country: US (occurrence: US)
  Receive Date: 20210707
  Receipt Date: 20210707
  Transmission Date: 20211014
  Serious: Yes (Death, Life-Threatening, Hospitalization)
  Sender: FDA-Public Use
  Company Number: US-NOSTRUM LABORATORIES, INC.-2113568

PATIENT
  Age: 29 Year
  Sex: Male

DRUGS (2)
  1. ESCITALOPRAM [Concomitant]
     Active Substance: ESCITALOPRAM OXALATE
     Route: 048
  2. VALPROIC ACID. [Suspect]
     Active Substance: VALPROIC ACID
     Indication: ACUTE PSYCHOSIS
     Route: 048

REACTIONS (5)
  - Toxic encephalopathy [Fatal]
  - Depressed level of consciousness [Fatal]
  - Brain oedema [Fatal]
  - Dehydration [Unknown]
  - Generalised tonic-clonic seizure [Unknown]
